FAERS Safety Report 4402336-7 (Version None)
Quarter: 2004Q3

REPORT INFORMATION
  Report Type: 
  Country: None (occurrence: None)
  Receive Date: 20040715
  Receipt Date: 20040625
  Transmission Date: 20050211
  Serious: Yes (Hospitalization)
  Sender: FDA-Public Use
  Company Number: 2004-FF-00320FF(1)

PATIENT
  Sex: Female

DRUGS (4)
  1. VIRAMUNE [Suspect]
     Indication: HIV INFECTION
     Dosage: 400 MG (200 MG)
     Route: 048
     Dates: start: 19980227, end: 20030429
  2. ZERIT [Suspect]
     Indication: HIV INFECTION
     Dosage: 60 MG (30 MG)
     Route: 048
     Dates: start: 19980227, end: 20030429
  3. VIDEX [Suspect]
     Indication: HIV INFECTION
     Dosage: 300 MG (MG), 250 MG (MG)
     Route: 048
     Dates: start: 19980227, end: 20000901
  4. VIDEX [Suspect]
     Indication: HIV INFECTION
     Dosage: 300 MG (MG), 250 MG (MG)
     Route: 048
     Dates: start: 20000901, end: 20030429

REACTIONS (2)
  - BIOPSY LIVER ABNORMAL [None]
  - HEPATIC CIRRHOSIS [None]
